FAERS Safety Report 8600541-7 (Version None)
Quarter: 2012Q3

REPORT INFORMATION
  Report Type: 
  Country: None (occurrence: None)
  Receive Date: 20120803
  Receipt Date: 20120723
  Transmission Date: 20120928
  Serious: Yes (Life-Threatening)
  Sender: FDA-Public Use
  Company Number: 1358873

PATIENT
  Age: 52 Year
  Sex: Male
  Weight: 31.6838 kg

DRUGS (1)
  1. GENTAMICIN SULFATE [Suspect]
     Indication: KIDNEY INFECTION
     Dosage: INTRAVENOUS (NOT OTHERWISE SPECIFIED)
     Route: 042

REACTIONS (4)
  - TREMOR [None]
  - ERYTHEMA [None]
  - ANAPHYLACTIC SHOCK [None]
  - LOCAL SWELLING [None]
